FAERS Safety Report 4466111-X (Version None)
Quarter: 2004Q4

REPORT INFORMATION
  Report Type: 
  Country: None (occurrence: None)
  Receive Date: 20041005
  Receipt Date: 20040312
  Transmission Date: 20050328
  Serious: Yes (Hospitalization, Other)
  Sender: FDA-Public Use
  Company Number: PHEH2004US02988

PATIENT
  Age: 48 Year
  Sex: Female
  Weight: 65 kg

DRUGS (5)
  1. ZELNORM [Suspect]
     Indication: IRRITABLE BOWEL SYNDROME
     Dosage: 6 MG, BID
     Route: 048
     Dates: start: 20040212, end: 20040219
  2. ZELNORM [Suspect]
     Dosage: 3 MG, BID
     Route: 048
     Dates: start: 20040221
  3. ZELNORM [Suspect]
     Dosage: 6 MG, BID
     Route: 048
     Dates: start: 20040201, end: 20040301
  4. DICYCLOMINE HYDROCHLORIDE [Concomitant]
  5. IBUPROFEN [Concomitant]
     Indication: PAIN
     Dosage: UNK, PRN

REACTIONS (25)
  - ABDOMINAL TENDERNESS [None]
  - ANAEMIA [None]
  - ANAL FISSURE [None]
  - ANAL FISTULA [None]
  - BAND NEUTROPHIL COUNT INCREASED [None]
  - BLOOD ALBUMIN DECREASED [None]
  - BLOODY DISCHARGE [None]
  - COLITIS ULCERATIVE [None]
  - DECREASED APPETITE [None]
  - DIARRHOEA [None]
  - DIZZINESS [None]
  - HAEMATOCHEZIA [None]
  - HAEMATOCRIT DECREASED [None]
  - HAEMOGLOBIN DECREASED [None]
  - HAEMORRHOIDS [None]
  - INFLAMMATORY BOWEL DISEASE [None]
  - MUCOSAL INFLAMMATION [None]
  - MUCOSAL ULCERATION [None]
  - NAUSEA [None]
  - PROCTALGIA [None]
  - PYREXIA [None]
  - RECTAL ULCER [None]
  - RED BLOOD CELL SEDIMENTATION RATE INCREASED [None]
  - WEIGHT DECREASED [None]
  - WHITE BLOOD CELL COUNT INCREASED [None]
